FAERS Safety Report 21825051 (Version 2)
Quarter: 2023Q1

REPORT INFORMATION
  Report Type: Spontaneous
  Country: IT (occurrence: IT)
  Receive Date: 20230105
  Receipt Date: 20230118
  Transmission Date: 20230417
  Serious: Yes (Other)
  Sender: FDA-Public Use
  Company Number: IT-TEVA-2022-IT-2842227

PATIENT
  Age: 57 Year
  Sex: Female

DRUGS (2)
  1. PACLITAXEL [Suspect]
     Active Substance: PACLITAXEL
     Indication: Endometrial adenocarcinoma
     Dosage: SIX CYCLES
     Route: 065
  2. CARBOPLATIN [Suspect]
     Active Substance: CARBOPLATIN
     Indication: Endometrial adenocarcinoma
     Dosage: SIX CYCLES
     Route: 065

REACTIONS (7)
  - Drug hypersensitivity [Unknown]
  - Off label use [Unknown]
  - Back pain [Unknown]
  - Heat exhaustion [Unknown]
  - Hypotension [Unknown]
  - Vomiting [Unknown]
  - Oxygen saturation decreased [Unknown]
